FAERS Safety Report 9365794 (Version 1)
Quarter: 2013Q2

REPORT INFORMATION
  Report Type: Spontaneous
  Country: US (occurrence: None)
  Receive Date: 20130624
  Receipt Date: 20130624
  Transmission Date: 20140414
  Serious: No
  Sender: FDA-Public Use
  Company Number: None

PATIENT
  Age: 12 Year
  Sex: Male

DRUGS (1)
  1. TEV-TROPIN [Suspect]
     Indication: DWARFISM
     Dates: start: 20110408

REACTIONS (2)
  - Lip discolouration [None]
  - Skin discolouration [None]
